FAERS Safety Report 8827358 (Version 1)
Quarter: 2012Q4

REPORT INFORMATION
  Report Type: 
  Country: US (occurrence: US)
  Receive Date: 20121005
  Receipt Date: 20121005
  Transmission Date: 20130627
  Serious: No
  Sender: FDA-Public Use
  Company Number: US-BRISTOL-MYERS SQUIBB COMPANY-16163917

PATIENT
  Sex: Male

DRUGS (4)
  1. AVAPRO [Suspect]
     Dosage: In morning + evening
  2. NORVASC [Concomitant]
     Dosage: Also taken 10mg
  3. ATENOLOL [Concomitant]
  4. COREG [Concomitant]

REACTIONS (1)
  - Incorrect dose administered [Unknown]
